FAERS Safety Report 26044809 (Version 1)
Quarter: 2025Q4

REPORT INFORMATION
  Report Type: Spontaneous
  Country: US (occurrence: US)
  Receive Date: 20251114
  Receipt Date: 20251114
  Transmission Date: 20260118
  Serious: No
  Sender: OPTINOSE INC
  Company Number: US-OPTINOSE US, INC.-2025OPT000212

PATIENT

DRUGS (1)
  1. XHANCE [Suspect]
     Active Substance: FLUTICASONE PROPIONATE
     Indication: Product used for unknown indication
     Dosage: 186 MICROGRAM, BID
     Route: 045
     Dates: start: 20250613, end: 20250627

REACTIONS (4)
  - Mouth ulceration [Recovered/Resolved]
  - Gingival swelling [Recovered/Resolved]
  - Lip swelling [Recovered/Resolved]
  - Candida infection [Not Recovered/Not Resolved]

NARRATIVE: CASE EVENT DATE: 20250613
